FAERS Safety Report 12463919 (Version 1)
Quarter: 2016Q2

REPORT INFORMATION
  Report Type: Spontaneous
  Country: US (occurrence: None)
  Receive Date: 20160613
  Receipt Date: 20160613
  Transmission Date: 20160815
  Serious: No
  Sender: FDA-Public Use
  Company Number: None

PATIENT
  Age: 70 Year
  Sex: Male

DRUGS (13)
  1. GABAPENTIN. [Concomitant]
     Active Substance: GABAPENTIN
  2. LOSARTAN. [Concomitant]
     Active Substance: LOSARTAN
  3. SENNA LAXATIVE [Concomitant]
     Active Substance: SENNOSIDES
  4. TYLENOL [Concomitant]
     Active Substance: ACETAMINOPHEN
  5. FLOMAX [Concomitant]
     Active Substance: TAMSULOSIN HYDROCHLORIDE
  6. TOPROL XL [Concomitant]
     Active Substance: METOPROLOL SUCCINATE
  7. VITAMIN D3 [Concomitant]
     Active Substance: CHOLECALCIFEROL
  8. ASPIRIN. [Concomitant]
     Active Substance: ASPIRIN
  9. FLUVASTATIN [Concomitant]
     Active Substance: FLUVASTATIN SODIUM
  10. SUTENT [Suspect]
     Active Substance: SUNITINIB MALATE
     Indication: SKIN ANGIOSARCOMA
     Route: 048
     Dates: start: 20160521, end: 20160609
  11. AVODART [Concomitant]
     Active Substance: DUTASTERIDE
  12. CIALIS [Concomitant]
     Active Substance: TADALAFIL
  13. COLACE [Concomitant]
     Active Substance: DOCUSATE SODIUM

REACTIONS (2)
  - White blood cell count decreased [None]
  - Therapy cessation [None]

NARRATIVE: CASE EVENT DATE: 20160610
